FAERS Safety Report 4974598-9 (Version None)
Quarter: 2006Q1

REPORT INFORMATION
  Report Type: 
  Country: None (occurrence: None)
  Receive Date: 20060215
  Receipt Date: 20051025
  Transmission Date: 20060701
  Serious: Yes (Other)
  Sender: FDA-Public Use
  Company Number: PROG00205003553

PATIENT
  Sex: Female

DRUGS (2)
  1. PROMETRIUM [Suspect]
     Indication: HORMONE REPLACEMENT THERAPY
     Dosage: DAILY ORAL 200 MG DAILY FOR 12 DAYS EACH MONTH
     Route: 048
     Dates: start: 20050901, end: 20050901
  2. VIVELLE-DOT [Suspect]
     Indication: HORMONE REPLACEMENT THERAPY
     Dosage: DAILY TRANSCUTANEOUS

REACTIONS (1)
  - TRANSIENT ISCHAEMIC ATTACK [None]
